FAERS Safety Report 21015351 (Version 1)
Quarter: 2022Q2

REPORT INFORMATION
  Report Type: Spontaneous
  Country: US (occurrence: None)
  Receive Date: 20220628
  Receipt Date: 20220628
  Transmission Date: 20220721
  Serious: Yes (Hospitalization, Other)
  Sender: FDA-Public Use
  Company Number: US-Hikma Pharmaceuticals USA Inc.-US-H14001-22-01590

PATIENT
  Age: 69 Year
  Sex: Male
  Weight: 103.1 kg

DRUGS (15)
  1. PREDNISONE [Suspect]
     Active Substance: PREDNISONE
     Indication: Product used for unknown indication
     Dosage: UNKNOWN
     Route: 065
  2. ITACITINIB [Suspect]
     Active Substance: ITACITINIB
     Indication: Prophylaxis against graft versus host disease
     Route: 048
     Dates: start: 20200617
  3. TACROLIMUS [Suspect]
     Active Substance: TACROLIMUS
     Indication: Prophylaxis against graft versus host disease
     Route: 042
     Dates: start: 20200616, end: 20200617
  4. TACROLIMUS [Suspect]
     Active Substance: TACROLIMUS
     Route: 042
     Dates: start: 20200618, end: 20200618
  5. TACROLIMUS [Suspect]
     Active Substance: TACROLIMUS
     Route: 042
     Dates: start: 20200624, end: 20200626
  6. TACROLIMUS [Suspect]
     Active Substance: TACROLIMUS
     Route: 042
     Dates: start: 20200627, end: 20200801
  7. TACROLIMUS [Suspect]
     Active Substance: TACROLIMUS
     Route: 042
     Dates: start: 20200802, end: 20200804
  8. TACROLIMUS [Suspect]
     Active Substance: TACROLIMUS
     Route: 042
     Dates: start: 20200805, end: 20200806
  9. CYCLOPHOSPHAMIDE [Suspect]
     Active Substance: CYCLOPHOSPHAMIDE
     Indication: Prophylaxis against graft versus host disease
     Route: 042
     Dates: start: 20200614, end: 20200615
  10. LEVOFLOXACIN [Concomitant]
     Active Substance: LEVOFLOXACIN
     Indication: Product used for unknown indication
     Dosage: UNKNOWN
     Route: 065
     Dates: start: 20200605, end: 20200616
  11. AMIODARONE [Concomitant]
     Active Substance: AMIODARONE
     Indication: Product used for unknown indication
     Dosage: UNKNOWN
     Route: 065
     Dates: start: 20200608, end: 20200627
  12. INSULIN LISPRO [Concomitant]
     Active Substance: INSULIN LISPRO
     Indication: Product used for unknown indication
     Dosage: UNKNOWN
     Route: 065
     Dates: start: 20200608, end: 20200623
  13. PEPCID [Concomitant]
     Active Substance: FAMOTIDINE
     Indication: Product used for unknown indication
     Dosage: UNKNOWN
     Route: 065
     Dates: start: 20200614, end: 20200702
  14. FIDAXOMICIN [Concomitant]
     Active Substance: FIDAXOMICIN
     Indication: Product used for unknown indication
     Dosage: UNKNOWN
     Route: 065
     Dates: start: 20200616, end: 20200626
  15. COLESEVELAM [Concomitant]
     Active Substance: COLESEVELAM
     Indication: Product used for unknown indication
     Dosage: UNKNOWN
     Route: 065
     Dates: start: 20200626, end: 20200626

REACTIONS (14)
  - Pneumonia [Recovered/Resolved]
  - Pyrexia [Recovered/Resolved]
  - Asthenia [Unknown]
  - Decreased appetite [Unknown]
  - Diarrhoea [Unknown]
  - Dyspnoea [Unknown]
  - Pleural effusion [Unknown]
  - Atelectasis [Unknown]
  - Condition aggravated [Unknown]
  - Orthopnoea [Unknown]
  - Pneumocystis jirovecii pneumonia [Recovered/Resolved]
  - Lung opacity [Unknown]
  - Fungal test positive [Unknown]
  - Dyspnoea exertional [Unknown]

NARRATIVE: CASE EVENT DATE: 20200715
